FAERS Safety Report 6313782-9 (Version None)
Quarter: 2009Q3

REPORT INFORMATION
  Report Type: 
  Country: None (occurrence: None)
  Receive Date: 20090818
  Receipt Date: 20070731
  Transmission Date: 20100115
  Serious: No
  Sender: FDA-Public Use
  Company Number: US-BRISTOL-MYERS SQUIBB COMPANY-14480479

PATIENT
  Age: 24 Year
  Sex: Female
  Weight: 3 kg

DRUGS (4)
  1. ATAZANAVIR [Suspect]
     Indication: HIV INFECTION
     Dosage: 1 DOSAGE FORM = 300 UNIT NOT SPECIFIED
     Route: 048
  2. LAMIVUDINE + ZIDOVUDINE [Suspect]
     Indication: HIV INFECTION
     Dosage: 1 DOSAGE FORM = 2 UNIT NOT SPECIFIED
     Route: 048
  3. RITONAVIR [Suspect]
     Indication: HIV INFECTION
     Dosage: 1 DOSAGE FORM = 100 UNIT NOT SPECIFIED
     Route: 048
  4. TENOFOVIR DISOPROXIL FUMARATE [Suspect]
     Indication: HIV INFECTION
     Dosage: 1 DOSAGE FORM = 300 UNIT NOT SPECIFIED
     Route: 048

REACTIONS (2)
  - LIVE BIRTH [None]
  - PREGNANCY [None]
